FAERS Safety Report 12882008 (Version 11)
Quarter: 2020Q1

REPORT INFORMATION
  Report Type: Report from Study
  Country: JP (occurrence: JP)
  Receive Date: 20161025
  Receipt Date: 20200212
  Transmission Date: 20200409
  Serious: Yes (Other)
  Sender: FDA-Public Use
  Company Number: JP-OTSUKA-2015_017788AA

PATIENT
  Age: 47 Year
  Sex: Female

DRUGS (18)
  1. TOLVAPTAN [Suspect]
     Active Substance: TOLVAPTAN
     Dosage: 22.5 MG, QD
     Route: 048
     Dates: start: 20160213, end: 20160213
  2. TOLVAPTAN [Suspect]
     Active Substance: TOLVAPTAN
     Dosage: 52.5MG/DAY, BID
     Route: 048
     Dates: start: 20160227, end: 20160303
  3. ARGAMATE [Concomitant]
     Active Substance: CALCIUM POLYSTYRENE SULFONATE
     Indication: CHRONIC KIDNEY DISEASE
     Dosage: 50 G, QD
     Route: 048
     Dates: start: 20180714
  4. TOLVAPTAN [Suspect]
     Active Substance: TOLVAPTAN
     Dosage: 15MG/DAY, BID
     Route: 048
     Dates: start: 20160104, end: 20160116
  5. TOLVAPTAN [Suspect]
     Active Substance: TOLVAPTAN
     Dosage: 22.5MG/DAY, BID
     Route: 048
     Dates: start: 20160121, end: 20160122
  6. TOLVAPTAN [Suspect]
     Active Substance: TOLVAPTAN
     Dosage: 60 MG/DAY, BID
     Route: 048
     Dates: start: 20160311, end: 20180220
  7. TOLVAPTAN [Suspect]
     Active Substance: TOLVAPTAN
     Dosage: 30MG/DAY, BID
     Route: 048
     Dates: start: 20160123, end: 20160201
  8. TOLVAPTAN [Suspect]
     Active Substance: TOLVAPTAN
     Dosage: 33.75MG/DAY, BID
     Route: 048
     Dates: start: 20160202, end: 20160206
  9. TOLVAPTAN [Suspect]
     Active Substance: TOLVAPTAN
     Indication: CONGENITAL CYSTIC KIDNEY DISEASE
     Dosage: 60MG/DAY, BID
     Route: 048
     Dates: start: 20151217, end: 20151223
  10. TOLVAPTAN [Suspect]
     Active Substance: TOLVAPTAN
     Dosage: 22.5 MG/DAY, DIVIDED 2 DOSES (EACH DOSE UNKNOWN)
     Route: 048
     Dates: start: 20180221, end: 20190924
  11. OLMETEC [Concomitant]
     Active Substance: OLMESARTAN MEDOXOMIL
     Indication: PRODUCT USED FOR UNKNOWN INDICATION
     Dosage: 20 MG, QD
     Route: 048
  12. FERROUS CITRATE [Concomitant]
     Active Substance: FERROUS CITRATE
     Indication: PRODUCT USED FOR UNKNOWN INDICATION
     Dosage: 50 MG/DAY, P.R.N
     Route: 048
  13. TOLVAPTAN [Suspect]
     Active Substance: TOLVAPTAN
     Dosage: 41.25MG/DAY, BID
     Route: 048
     Dates: start: 20160214, end: 20160217
  14. TOLVAPTAN [Suspect]
     Active Substance: TOLVAPTAN
     Dosage: 45MG/DAY, BID
     Route: 048
     Dates: start: 20160218, end: 20160226
  15. TOLVAPTAN [Suspect]
     Active Substance: TOLVAPTAN
     Dosage: 37.5MG/DAY, BID
     Route: 048
     Dates: start: 20160207, end: 20160212
  16. TOLVAPTAN [Suspect]
     Active Substance: TOLVAPTAN
     Dosage: 56.25MG/DAY, BID
     Route: 048
     Dates: start: 20160304, end: 20160310
  17. TOLVAPTAN [Suspect]
     Active Substance: TOLVAPTAN
     Dosage: 18.75MG/DAY, BID
     Route: 048
     Dates: start: 20160117, end: 20160120
  18. CONIEL [Concomitant]
     Active Substance: BENIDIPINE HYDROCHLORIDE
     Indication: PRODUCT USED FOR UNKNOWN INDICATION
     Dosage: 4 MG, QD
     Route: 048
     Dates: end: 20161014

REACTIONS (7)
  - Glomerular filtration rate decreased [Unknown]
  - Drug titration error [Unknown]
  - Hyperuricaemia [Not Recovered/Not Resolved]
  - Inappropriate schedule of product administration [Unknown]
  - Glaucoma [Recovering/Resolving]
  - Toxic skin eruption [Recovered/Resolved]
  - Erythema [Unknown]

NARRATIVE: CASE EVENT DATE: 20151220
